FAERS Safety Report 11796982 (Version 1)
Quarter: 2015Q4

REPORT INFORMATION
  Report Type: Spontaneous
  Country: US (occurrence: US)
  Receive Date: 20151203
  Receipt Date: 20151203
  Transmission Date: 20160305
  Serious: No
  Sender: FDA-Public Use
  Company Number: US-HORIZON-ACT-0208-2015

PATIENT
  Age: 20 Year
  Sex: Male

DRUGS (1)
  1. ACTIMMUNE [Suspect]
     Active Substance: INTERFERON GAMMA-1B
     Indication: WHITE BLOOD CELL DISORDER
     Dosage: 80 ?G THREE TIMES WEEKLY
     Dates: start: 201307

REACTIONS (2)
  - Drug dose omission [Recovered/Resolved]
  - Off label use [Unknown]
